FAERS Safety Report 21038829 (Version 2)
Quarter: 2022Q3

REPORT INFORMATION
  Report Type: Report from Study
  Country: JP (occurrence: JP)
  Receive Date: 20220704
  Receipt Date: 20220711
  Transmission Date: 20221027
  Serious: Yes (Death, Hospitalization, Other)
  Sender: FDA-Public Use
  Company Number: JP-ASTELLAS-2022JP004349

PATIENT
  Age: 86 Year
  Sex: Female

DRUGS (3)
  1. ENFORTUMAB VEDOTIN [Suspect]
     Active Substance: ENFORTUMAB VEDOTIN
     Indication: Transitional cell carcinoma
     Dosage: 1.25 MG/KG, FREQUENCY: 3, DOSING INTERVAL UNIT: MONTH
     Route: 041
     Dates: start: 20220309, end: 20220420
  2. PREDONINE [Concomitant]
     Active Substance: PREDNISOLONE
     Indication: Interstitial lung disease
     Route: 065
     Dates: start: 20220420, end: 20220427
  3. PREDONINE [Concomitant]
     Active Substance: PREDNISOLONE
     Route: 065
     Dates: start: 20220428, end: 20220504

REACTIONS (5)
  - Interstitial lung disease [Fatal]
  - Blood lactate dehydrogenase increased [Unknown]
  - Dermatitis bullous [Unknown]
  - Hepatic steatosis [Unknown]
  - Vomiting [Unknown]

NARRATIVE: CASE EVENT DATE: 20220301
